FAERS Safety Report 7643129-7 (Version None)
Quarter: 2011Q3

REPORT INFORMATION
  Report Type: 
  Country: None (occurrence: None)
  Receive Date: 20110729
  Receipt Date: 20110719
  Transmission Date: 20111222
  Serious: Yes (Hospitalization, Other)
  Sender: FDA-Public Use
  Company Number: US-BIOGENIDEC-2011BI017579

PATIENT
  Age: 56 Year
  Sex: Male

DRUGS (8)
  1. CLONAZEPAM [Concomitant]
  2. TIZANIDINE HCL [Concomitant]
  3. BACLOFEN [Concomitant]
  4. METOPROLOL TARTRATE [Concomitant]
     Indication: HYPERTENSION
  5. OXYCODONE HCL [Concomitant]
     Indication: PAIN IN EXTREMITY
  6. AMANTADINE HCL [Concomitant]
  7. PRIMODONE [Concomitant]
  8. TYSABRI [Suspect]
     Indication: MULTIPLE SCLEROSIS
     Route: 042
     Dates: start: 20101230, end: 20110412

REACTIONS (7)
  - MUSCLE SPASMS [None]
  - URINARY TRACT INFECTION [None]
  - BRADYCARDIA [None]
  - KLEBSIELLA INFECTION [None]
  - MULTIPLE SCLEROSIS RELAPSE [None]
  - CARDIAC FAILURE CONGESTIVE [None]
  - LETHARGY [None]
